FAERS Safety Report 18168385 (Version 4)
Quarter: 2021Q2

REPORT INFORMATION
  Report Type: Report from Study
  Country: BR (occurrence: BR)
  Receive Date: 20200819
  Receipt Date: 20210602
  Transmission Date: 20210717
  Serious: Yes (Other)
  Sender: FDA-Public Use
  Company Number: NVSC2020BR226276

PATIENT
  Age: 63 Year
  Sex: Female
  Weight: 107.3 kg

DRUGS (10)
  1. COSENTYX [Suspect]
     Active Substance: SECUKINUMAB
     Indication: PSORIASIS
     Dosage: 300 MG, QMO
     Route: 065
     Dates: start: 20190324
  2. COSENTYX [Suspect]
     Active Substance: SECUKINUMAB
     Dosage: UNK
     Route: 065
     Dates: start: 20210410
  3. PREDNISONE. [Concomitant]
     Active Substance: PREDNISONE
     Indication: PSORIASIS
     Dosage: UNK UNK, QD
     Route: 048
     Dates: start: 201903
  4. METOTREX [Concomitant]
     Indication: PSORIASIS
     Dosage: UNK
     Route: 048
     Dates: start: 201903
  5. PANTOPRAZOLE [Concomitant]
     Active Substance: PANTOPRAZOLE
     Indication: GASTRITIS
     Dosage: 1 DF
     Route: 048
  6. HUMIRA [Concomitant]
     Active Substance: ADALIMUMAB
     Indication: PSORIATIC ARTHROPATHY
     Dosage: UNK (TWICE FOR THE MONTH)
     Route: 065
     Dates: start: 201901
  7. ATENOLOL. [Suspect]
     Active Substance: ATENOLOL
     Indication: HYPERTENSION
     Dosage: 0.25 OT, BID
     Route: 065
  8. SPIRULINA [Concomitant]
     Active Substance: HERBALS\SPIRULINA
     Indication: PRODUCT USED FOR UNKNOWN INDICATION
     Dosage: UNK (STOP DATE: UNKNOWN DATE IN 2021)
     Route: 065
  9. COSENTYX [Suspect]
     Active Substance: SECUKINUMAB
     Indication: RHEUMATOID ARTHRITIS
     Dosage: UNK
     Route: 065
     Dates: start: 20201116
  10. OMEPRAZOLE. [Concomitant]
     Active Substance: OMEPRAZOLE
     Indication: GASTRITIS
     Dosage: UNK, QD (START DATE: MORE THAN 6 YEARS AGO)
     Route: 065
     Dates: end: 202012

REACTIONS (38)
  - Arthralgia [Not Recovered/Not Resolved]
  - Rhinorrhoea [Recovered/Resolved]
  - Grip strength decreased [Not Recovered/Not Resolved]
  - Memory impairment [Unknown]
  - Cardiovascular disorder [Not Recovered/Not Resolved]
  - Swelling [Not Recovered/Not Resolved]
  - Headache [Recovered/Resolved]
  - Sluggishness [Recovered/Resolved]
  - Scab [Recovering/Resolving]
  - Spinal pain [Not Recovered/Not Resolved]
  - Oropharyngeal pain [Recovered/Resolved]
  - Dandruff [Not Recovered/Not Resolved]
  - Anal haemorrhage [Recovered/Resolved]
  - Skin fissures [Unknown]
  - Dyspepsia [Recovering/Resolving]
  - Glucose tolerance impaired [Not Recovered/Not Resolved]
  - Erosive oesophagitis [Recovering/Resolving]
  - Pain in extremity [Not Recovered/Not Resolved]
  - Pyrexia [Recovered/Resolved]
  - Influenza [Recovered/Resolved]
  - Gait disturbance [Not Recovered/Not Resolved]
  - Influenza [Recovered/Resolved]
  - Pustule [Recovering/Resolving]
  - Pruritus [Not Recovered/Not Resolved]
  - Epistaxis [Unknown]
  - Scab [Recovered/Resolved]
  - Bone pain [Not Recovered/Not Resolved]
  - Skin lesion [Recovered/Resolved with Sequelae]
  - Skin mass [Not Recovered/Not Resolved]
  - Stress [Not Recovered/Not Resolved]
  - Wound [Not Recovered/Not Resolved]
  - Product use in unapproved indication [Unknown]
  - Peripheral swelling [Not Recovered/Not Resolved]
  - Weight increased [Unknown]
  - Wound complication [Not Recovered/Not Resolved]
  - Malaise [Recovered/Resolved]
  - Abdominal distension [Recovering/Resolving]
  - Drug ineffective [Not Recovered/Not Resolved]

NARRATIVE: CASE EVENT DATE: 201905
